FAERS Safety Report 10466783 (Version 1)
Quarter: 2014Q3

REPORT INFORMATION
  Report Type: Spontaneous
  Country: IT (occurrence: IT)
  Receive Date: 20140922
  Receipt Date: 20140922
  Transmission Date: 20150326
  Serious: Yes (Other)
  Sender: FDA-Public Use
  Company Number: IT-TEVA-508758ISR

PATIENT
  Age: 67 Year
  Sex: Male
  Weight: 102 kg

DRUGS (4)
  1. DOBETIN [Concomitant]
     Active Substance: CYANOCOBALAMIN
     Dosage: 1000 MICROGRAM DAILY;
     Route: 030
  2. ALIMTA [Suspect]
     Active Substance: PEMETREXED DISODIUM
     Indication: LUNG ADENOCARCINOMA METASTATIC
     Dosage: 765 MILLIGRAM DAILY;
     Route: 042
     Dates: start: 20140314, end: 20140612
  3. CARBOPLATINO TEVA [Suspect]
     Active Substance: CARBOPLATIN
     Indication: LUNG ADENOCARCINOMA METASTATIC
     Dosage: 530 MILLIGRAM DAILY;
     Route: 042
     Dates: start: 20140314, end: 20140612
  4. FOLINGRAV [Concomitant]
     Dosage: 1 TABLET DAILY;

REACTIONS (4)
  - Anaemia [Recovered/Resolved]
  - Neutropenia [Recovered/Resolved]
  - Pancytopenia [Recovered/Resolved]
  - Thrombocytopenia [Recovered/Resolved]

NARRATIVE: CASE EVENT DATE: 20140626
